FAERS Safety Report 16466897 (Version 1)
Quarter: 2019Q2

REPORT INFORMATION
  Report Type: Spontaneous
  Country: US (occurrence: US)
  Receive Date: 20190624
  Receipt Date: 20190624
  Transmission Date: 20190711
  Serious: No
  Sender: FDA-Public Use
  Company Number: US-GLAXOSMITHKLINE-US2019AMR110028

PATIENT

DRUGS (1)
  1. BENLYSTA [Suspect]
     Active Substance: BELIMUMAB
     Indication: SYSTEMIC LUPUS ERYTHEMATOSUS
     Dosage: UNK

REACTIONS (7)
  - Bone pain [Unknown]
  - Rash [Recovering/Resolving]
  - Multiple allergies [Unknown]
  - Eye irritation [Unknown]
  - Fatigue [Recovering/Resolving]
  - Vision blurred [Unknown]
  - Joint stiffness [Unknown]
